FAERS Safety Report 9372367 (Version 2)
Quarter: 2013Q3

REPORT INFORMATION
  Report Type: Spontaneous
  Country: JP (occurrence: JP)
  Receive Date: 20130627
  Receipt Date: 20130708
  Transmission Date: 20140515
  Serious: Yes (Hospitalization)
  Sender: FDA-Public Use
  Company Number: JP-UCBSA-087969

PATIENT
  Age: 77 Year
  Sex: Male

DRUGS (8)
  1. NEUPRO [Suspect]
     Indication: PARKINSON^S DISEASE
     Dosage: TOPICAL ODT
     Route: 061
     Dates: start: 20130314, end: 20130410
  2. THEOLONG [Suspect]
     Dosage: 2 TABLET
     Route: 048
     Dates: end: 20130411
  3. PRAMIPEXOLE HYDROCHLORIDE HYDRATE [Concomitant]
     Dosage: UNKNOWN
  4. CLENBUTEROL HYDROCHLORIDE [Concomitant]
     Dosage: DAILY DOSE: 20 MCG
     Dates: end: 20130411
  5. IBUDILAST [Concomitant]
     Dosage: DAILY DOSE: 30 MG
     Dates: start: 20130131, end: 20130423
  6. FLUNITRAZEPAM [Concomitant]
     Dosage: DAILY DOSE: 2MG
     Dates: start: 20130131, end: 20130423
  7. BROTIZOLAM [Concomitant]
     Dosage: DAILY DOSE: 0.5 MG
     Dates: start: 20130131, end: 20130423
  8. AMLODIPINE BESILATE [Concomitant]
     Dosage: DAILY DOSE: 5 MG
     Dates: start: 20130131

REACTIONS (1)
  - Delirium [Unknown]
